FAERS Safety Report 8078941-6 (Version None)
Quarter: 2012Q1

REPORT INFORMATION
  Report Type: 
  Country: None (occurrence: None)
  Receive Date: 20120128
  Receipt Date: 20110425
  Transmission Date: 20120608
  Serious: No
  Sender: FDA-Public Use
  Company Number: US-ABBOTT-11P-163-0721621-00

PATIENT
  Age: 31 Year
  Sex: Female

DRUGS (2)
  1. SPIRONOLACTONE [Concomitant]
     Indication: ACNE
     Route: 048
     Dates: start: 20101213
  2. HUMIRA [Suspect]
     Indication: PSORIASIS
     Dates: start: 20100801

REACTIONS (4)
  - INCREASED TENDENCY TO BRUISE [None]
  - INJECTION SITE HAEMATOMA [None]
  - GINGIVAL BLEEDING [None]
  - INJECTION SITE PAIN [None]
